FAERS Safety Report 4596816-1 (Version None)
Quarter: 2005Q1

REPORT INFORMATION
  Report Type: 
  Country: None (occurrence: None)
  Receive Date: 20050228
  Receipt Date: 20050215
  Transmission Date: 20050727
  Serious: No
  Sender: FDA-Public Use
  Company Number: 2005GB00321

PATIENT
  Age: 60 Year

DRUGS (5)
  1. FELODIPINE [Suspect]
  2. AMLODIPINE [Suspect]
     Indication: HYPERTENSION
     Dosage: 5 MG QD PO
     Route: 048
     Dates: start: 20041027, end: 20041031
  3. BENDROFLUAZIDE [Concomitant]
  4. FLECAINIDE ACETATE [Concomitant]
  5. TERBUTALINE [Concomitant]

REACTIONS (6)
  - BLOOD PRESSURE INCREASED [None]
  - CEREBROVASCULAR ACCIDENT [None]
  - COGNITIVE DISORDER [None]
  - MEMORY IMPAIRMENT [None]
  - MIGRAINE [None]
  - VISION BLURRED [None]
